FAERS Safety Report 8615638-5 (Version None)
Quarter: 2012Q3

REPORT INFORMATION
  Report Type: 
  Country: None (occurrence: None)
  Receive Date: 20120823
  Receipt Date: 20120809
  Transmission Date: 20120928
  Serious: Yes (Hospitalization, Other)
  Sender: FDA-Public Use
  Company Number: DE-BRISTOL-MYERS SQUIBB COMPANY-16802597

PATIENT
  Age: 72 Year
  Sex: Female
  Weight: 59 kg

DRUGS (6)
  1. SPIRONOLACTONE [Suspect]
     Dosage: HALF TAB
     Dates: end: 20120718
  2. IRBESARTAN [Suspect]
  3. IRBESARTAN [Suspect]
     Dates: start: 20120101
  4. IRBESARTAN AND HYDROCHLOROTHIAZIDE [Suspect]
  5. IRBESARTAN [Suspect]
     Indication: HYPERTENSION
     Dosage: 1 DF=150/12.5 MG. OR 150 MG IN THE MORNING
  6. INSULIN [Concomitant]

REACTIONS (3)
  - TRANSIENT ISCHAEMIC ATTACK [None]
  - CORONARY ARTERY DISEASE [None]
  - BLOOD PRESSURE DECREASED [None]
